APPROVED DRUG PRODUCT: GRISEOFULVIN
Active Ingredient: GRISEOFULVIN, MICROSIZE
Strength: 125MG/5ML
Dosage Form/Route: SUSPENSION;ORAL
Application: A065394 | Product #001 | TE Code: AB
Applicant: ACTAVIS MID ATLANTIC LLC
Approved: Jul 6, 2007 | RLD: No | RS: Yes | Type: RX